FAERS Safety Report 12572271 (Version 2)
Quarter: 2016Q3

REPORT INFORMATION
  Report Type: Spontaneous
  Country: US (occurrence: US)
  Receive Date: 20160719
  Receipt Date: 20160725
  Transmission Date: 20161109
  Serious: No
  Sender: FDA-Public Use
  Company Number: PHEH2016US017682

PATIENT

DRUGS (1)
  1. SANDOSTATIN LAR DEPOT [Suspect]
     Active Substance: OCTREOTIDE ACETATE
     Indication: CARCINOID SYNDROME
     Dosage: QMO (MONTHLY)
     Route: 065

REACTIONS (2)
  - Rash pustular [Unknown]
  - Rash pruritic [Unknown]
